FAERS Safety Report 25961922 (Version 1)
Quarter: 2025Q4

REPORT INFORMATION
  Report Type: Report from Study
  Country: US (occurrence: US)
  Receive Date: 20251027
  Receipt Date: 20251027
  Transmission Date: 20260117
  Serious: Yes (Hospitalization, Other)
  Sender: TAKEDA
  Company Number: US-TAKEDA-2025TUS091929

PATIENT
  Age: 70 Year
  Sex: Male

DRUGS (10)
  1. FRUQUINTINIB [Suspect]
     Active Substance: FRUQUINTINIB
     Indication: Product used for unknown indication
     Dosage: 4 MILLIGRAM
  2. DILTIAZEM [Concomitant]
     Active Substance: DILTIAZEM
     Dosage: UNK
  3. FLONASE [Concomitant]
     Active Substance: FLUTICASONE PROPIONATE
     Dosage: UNK
  4. HYDROCORTISONE [Concomitant]
     Active Substance: HYDROCORTISONE
     Dosage: UNK
  5. LIDOCAINE\PRILOCAINE [Concomitant]
     Active Substance: LIDOCAINE\PRILOCAINE
     Dosage: UNK
  6. LUNESTA [Concomitant]
     Active Substance: ESZOPICLONE
     Dosage: UNK
  7. POTASSIUM CHLORIDE [Concomitant]
     Active Substance: POTASSIUM CHLORIDE
     Dosage: UNK
  8. MAGNESIUM [Concomitant]
     Active Substance: MAGNESIUM
     Dosage: UNK
  9. TAMSULOSIN [Concomitant]
     Active Substance: TAMSULOSIN
     Dosage: UNK
  10. VITAMIN B12 [Concomitant]
     Active Substance: CYANOCOBALAMIN
     Dosage: UNK

REACTIONS (2)
  - Cerebrovascular accident [Not Recovered/Not Resolved]
  - Seizure [Not Recovered/Not Resolved]
